FAERS Safety Report 9770793 (Version 2)
Quarter: 2014Q1

REPORT INFORMATION
  Report Type: Spontaneous
  Country: US (occurrence: US)
  Receive Date: 20131218
  Receipt Date: 20140110
  Transmission Date: 20141002
  Serious: Yes (Other)
  Sender: FDA-Public Use
  Company Number: US-PFIZER INC-2013359895

PATIENT
  Age: 63 Year
  Sex: Male

DRUGS (6)
  1. XELJANZ [Suspect]
     Indication: RHEUMATOID ARTHRITIS
     Dosage: 5 MG, 2X/DAY
     Route: 048
     Dates: start: 20130627, end: 20131122
  2. LOSARTAN POTASSIUM [Concomitant]
     Dosage: 100 MG, UNK
  3. LIPITOR [Concomitant]
     Dosage: 10 MG, UNK
  4. ASA [Concomitant]
     Dosage: 81 MG, UNK
  5. VALTREX [Concomitant]
     Dosage: 500 MG, UNK
  6. LEVITRA [Concomitant]
     Dosage: 10 MG, UNK

REACTIONS (3)
  - Rheumatoid arthritis [Unknown]
  - Nasopharyngitis [Recovered/Resolved]
  - Influenza like illness [Recovered/Resolved]
